FAERS Safety Report 4543298-1 (Version None)
Quarter: 2004Q4

REPORT INFORMATION
  Report Type: 
  Country: None (occurrence: None)
  Receive Date: 20041229
  Receipt Date: 20041213
  Transmission Date: 20050328
  Serious: No
  Sender: FDA-Public Use
  Company Number: 2004AC01041

PATIENT

DRUGS (1)
  1. XYLOCAINE [Suspect]

REACTIONS (1)
  - INJECTION SITE PAIN [None]
